FAERS Safety Report 18549797 (Version 2)
Quarter: 2020Q4

REPORT INFORMATION
  Report Type: Spontaneous
  Country: JP (occurrence: JP)
  Receive Date: 20201126
  Receipt Date: 20201218
  Transmission Date: 20210114
  Serious: Yes (Other)
  Sender: FDA-Public Use
  Company Number: JP-009507513-2011JPN002387J

PATIENT
  Age: 85 Year
  Sex: Female
  Weight: 55 kg

DRUGS (7)
  1. BRIDION [Suspect]
     Active Substance: SUGAMMADEX
     Dosage: 200MG(3.6MG/KG-1)
  2. BRIDION [Suspect]
     Active Substance: SUGAMMADEX
     Indication: NEUROMUSCULAR BLOCKADE REVERSAL
     Dosage: 200MG(3.6MG/KG-1)
     Route: 042
  3. PROPOFOL. [Concomitant]
     Active Substance: PROPOFOL
     Indication: ANAESTHESIA PROCEDURE
     Dosage: 60 MILLIGRAM
     Route: 051
  4. REMIFENTANIL HYDROCHLORIDE. [Concomitant]
     Active Substance: REMIFENTANIL HYDROCHLORIDE
     Indication: ANAESTHESIA PROCEDURE
     Dosage: 0.5-3.0 MICRO-G/KG-1/MIN-1
     Route: 051
  5. ESLAX INTRAVENOUS 25MG/2.5ML [Suspect]
     Active Substance: ROCURONIUM BROMIDE
     Indication: NEUROMUSCULAR BLOCKING THERAPY
     Dosage: 50 MG(0.9MG/KG-1)
     Route: 042
  6. FENTANYL. [Concomitant]
     Active Substance: FENTANYL
     Indication: ANAESTHESIA PROCEDURE
     Dosage: 100 MICROGRAM
     Route: 051
  7. SEVOFLURANE. [Concomitant]
     Active Substance: SEVOFLURANE
     Indication: ANAESTHESIA PROCEDURE
     Dosage: 1.5 PERCENT
     Route: 051

REACTIONS (4)
  - Hypotonia [Recovered/Resolved]
  - Altered state of consciousness [Recovered/Resolved]
  - Respiratory depression [Recovered/Resolved]
  - Recurrence of neuromuscular blockade [Recovered/Resolved]
